FAERS Safety Report 5524600-0 (Version None)
Quarter: 2007Q4

REPORT INFORMATION
  Report Type: 
  Country: None (occurrence: None)
  Receive Date: 20071123
  Receipt Date: 20071120
  Transmission Date: 20080405
  Serious: Yes (Life-Threatening, Hospitalization)
  Sender: FDA-Public Use
  Company Number: US-JNJFOC-20071108287

PATIENT
  Sex: Male
  Weight: 94.35 kg

DRUGS (1)
  1. LEVAQUIN [Suspect]
     Indication: PROSTATECTOMY
     Route: 048

REACTIONS (3)
  - MYALGIA [None]
  - PULMONARY THROMBOSIS [None]
  - TENDONITIS [None]
